FAERS Safety Report 16618699 (Version 3)
Quarter: 2019Q3

REPORT INFORMATION
  Report Type: Spontaneous
  Country: JP (occurrence: JP)
  Receive Date: 20190723
  Receipt Date: 20190913
  Transmission Date: 20191004
  Serious: Yes (Life-Threatening, Hospitalization, Other)
  Sender: FDA-Public Use
  Company Number: JP-ELI_LILLY_AND_COMPANY-JP201907009617

PATIENT
  Sex: Female
  Weight: 34 kg

DRUGS (11)
  1. FERROMIA [Concomitant]
     Active Substance: SODIUM FERROUS CITRATE
     Indication: IRON DEFICIENCY ANAEMIA
     Dosage: 100 MG, BID
     Route: 048
     Dates: start: 20190327, end: 20190828
  2. DEXTROMETHORPHAN HYDROBROMIDE. [Interacting]
     Active Substance: DEXTROMETHORPHAN HYDROBROMIDE
     Indication: UPPER RESPIRATORY TRACT INFLAMMATION
     Dosage: 15 MG, TID
     Route: 048
     Dates: start: 20190619, end: 20190629
  3. CELECOX [Concomitant]
     Active Substance: CELECOXIB
     Indication: BACK PAIN
  4. ESOMEPRAZOLE MAGNESIUM. [Concomitant]
     Active Substance: ESOMEPRAZOLE MAGNESIUM
     Indication: PROPHYLAXIS AGAINST GASTROINTESTINAL ULCER
     Dosage: 20 MG, DAILY
     Route: 048
     Dates: start: 20190525
  5. FOLIAMIN [Concomitant]
     Active Substance: FOLIC ACID
     Indication: ANAEMIA PROPHYLAXIS
     Dosage: 5 MG, TID
     Route: 048
     Dates: start: 20190327, end: 20190828
  6. EDIROL [Concomitant]
     Active Substance: ELDECALCITOL
     Indication: OSTEOPOROSIS
     Dosage: 0.75 UG, DAILY
     Route: 048
     Dates: start: 20190327, end: 20190816
  7. CELECOX [Concomitant]
     Active Substance: CELECOXIB
     Indication: PROCEDURAL PAIN
     Dosage: 100 MG, BID
     Route: 048
     Dates: start: 20190525, end: 20190816
  8. DULOXETINE HYDROCHLORIDE. [Suspect]
     Active Substance: DULOXETINE HYDROCHLORIDE
     Indication: BACK PAIN
     Dosage: 20 MG, EACH EVENING
     Route: 048
     Dates: start: 20190628, end: 20190629
  9. PRIMPERAN [Concomitant]
     Active Substance: METOCLOPRAMIDE HYDROCHLORIDE
     Indication: PROPHYLAXIS OF NAUSEA AND VOMITING
     Dosage: 5 MG, TID
     Route: 048
     Dates: start: 20190628, end: 20190629
  10. ASPARA-CA [Concomitant]
     Active Substance: CALCIUM ASPARTATE
     Indication: HYPOCALCAEMIA
     Dosage: 400 MG, TID
     Route: 048
     Dates: start: 20190327
  11. BIO-THREE [Concomitant]
     Active Substance: HERBALS
     Dosage: 2 DOSAGE FORM, TID
     Route: 048
     Dates: start: 20190327

REACTIONS (6)
  - Brain contusion [Recovered/Resolved]
  - Dizziness [Unknown]
  - Drug interaction [Unknown]
  - Loss of consciousness [Unknown]
  - Subarachnoid haemorrhage [Recovered/Resolved]
  - Contusion [Unknown]

NARRATIVE: CASE EVENT DATE: 20190630
